FAERS Safety Report 7492594-7 (Version None)
Quarter: 2011Q2

REPORT INFORMATION
  Report Type: 
  Country: None (occurrence: None)
  Receive Date: 20110519
  Receipt Date: 20110517
  Transmission Date: 20111010
  Serious: Yes (Other)
  Sender: FDA-Public Use
  Company Number: AU-PFIZER INC-2011107115

PATIENT
  Age: 56 Year
  Sex: Female

DRUGS (1)
  1. LIPITOR [Suspect]
     Dosage: 20 MG, UNK

REACTIONS (1)
  - OPTIC ISCHAEMIC NEUROPATHY [None]
